FAERS Safety Report 17044934 (Version 1)
Quarter: 2019Q4

REPORT INFORMATION
  Report Type: Spontaneous
  Country: GB (occurrence: GB)
  Receive Date: 20191118
  Receipt Date: 20191118
  Transmission Date: 20200122
  Serious: Yes (Other)
  Sender: FDA-Public Use
  Company Number: NVSC2019GB038846

PATIENT
  Sex: Male

DRUGS (1)
  1. ENTRESTO [Suspect]
     Active Substance: SACUBITRIL\VALSARTAN
     Indication: PRODUCT USED FOR UNKNOWN INDICATION
     Dosage: UNK (LOW DOSE)
     Route: 065

REACTIONS (5)
  - Cough [Unknown]
  - Haemoglobin increased [Unknown]
  - N-terminal prohormone brain natriuretic peptide increased [Unknown]
  - Fatigue [Unknown]
  - Dyspnoea [Unknown]
